FAERS Safety Report 24066266 (Version 1)
Quarter: 2024Q3

REPORT INFORMATION
  Report Type: Report from Study
  Country: US (occurrence: US)
  Receive Date: 20240709
  Receipt Date: 20240709
  Transmission Date: 20241017
  Serious: Yes (Other)
  Sender: JOHNSON AND JOHNSON
  Company Number: US-JNJFOC-20240704021

PATIENT

DRUGS (2)
  1. TOPAMAX [Suspect]
     Active Substance: TOPIRAMATE
     Indication: Obesity
     Route: 048
  2. INVOKANA [Suspect]
     Active Substance: CANAGLIFLOZIN
     Indication: Obesity
     Route: 048

REACTIONS (12)
  - Cholangitis [Unknown]
  - Bile duct stone [Unknown]
  - Anastomotic ulcer [Unknown]
  - Cholecystitis [Unknown]
  - Abdominal pain [Unknown]
  - Nausea [Unknown]
  - Gastrooesophageal reflux disease [Unknown]
  - Dehydration [Unknown]
  - Internal hernia [Unknown]
  - Adverse event [Unknown]
  - Cholelithiasis [Unknown]
  - Off label use [Unknown]
